FAERS Safety Report 9193682 (Version 2)
Quarter: 2013Q2

REPORT INFORMATION
  Report Type: Spontaneous
  Country: US (occurrence: US)
  Receive Date: 20130327
  Receipt Date: 20130408
  Transmission Date: 20140414
  Serious: Yes (Hospitalization, Other)
  Sender: FDA-Public Use
  Company Number: US-GLAXOSMITHKLINE-B0878295A

PATIENT
  Age: 77 Year
  Sex: Male

DRUGS (6)
  1. CLENIL MODULITE [Suspect]
     Indication: ASTHMA
     Dosage: 200MCG TWICE PER DAY
     Route: 055
     Dates: start: 20130219
  2. WARFARIN [Suspect]
     Indication: ATRIAL FIBRILLATION
  3. LEVOTHYROXINE [Suspect]
     Indication: HYPOTHYROIDISM
     Dosage: 150MG PER DAY
  4. VERAPAMIL [Suspect]
     Indication: ATRIAL FIBRILLATION
     Dosage: 80MG THREE TIMES PER DAY
  5. TAMSULOSIN [Suspect]
     Indication: PROSTATOMEGALY
     Dosage: 400MG PER DAY
  6. OCUVITE [Concomitant]
     Route: 065

REACTIONS (10)
  - Cerebrovascular accident [Unknown]
  - International normalised ratio decreased [Unknown]
  - Haemorrhage [Unknown]
  - Drug interaction [Unknown]
  - Therapeutic response unexpected [Unknown]
  - Pleural effusion [None]
  - Cerebral ischaemia [None]
  - Intracranial aneurysm [None]
  - Cardiomegaly [None]
  - Pulmonary oedema [None]
